FAERS Safety Report 4581631-5 (Version None)
Quarter: 2005Q1

REPORT INFORMATION
  Report Type: 
  Country: None (occurrence: None)
  Receive Date: 20050214
  Receipt Date: 20041206
  Transmission Date: 20050727
  Serious: No
  Sender: FDA-Public Use
  Company Number: US-GLAXOSMITHKLINE-A0536532A

PATIENT
  Sex: Female

DRUGS (3)
  1. LAMICTAL [Suspect]
     Indication: BIPOLAR DISORDER
     Dosage: 100MG PER DAY
     Route: 048
     Dates: start: 20040501
  2. NEURONTIN [Concomitant]
  3. WELLBUTRIN [Concomitant]

REACTIONS (3)
  - FLAT AFFECT [None]
  - LIBIDO DECREASED [None]
  - RASH [None]
